FAERS Safety Report 5858652-5 (Version None)
Quarter: 2008Q3

REPORT INFORMATION
  Report Type: 
  Country: None (occurrence: None)
  Receive Date: 20080826
  Receipt Date: 20080821
  Transmission Date: 20090109
  Serious: No
  Sender: FDA-Public Use
  Company Number: US-BOEHRINGER INGELHEIM GMBH, GERMANY-2008-BP-13249BP

PATIENT
  Sex: Male

DRUGS (3)
  1. FLOMAX [Suspect]
     Indication: RESIDUAL URINE
     Route: 048
     Dates: start: 20080801, end: 20080801
  2. COUMADIN [Concomitant]
     Indication: ATRIAL FIBRILLATION
  3. ATENOLOL [Concomitant]
     Indication: HYPERTENSION

REACTIONS (2)
  - ATRIAL FIBRILLATION [None]
  - DIZZINESS [None]
